FAERS Safety Report 8300303-4 (Version None)
Quarter: 2012Q2

REPORT INFORMATION
  Report Type: 
  Country: None (occurrence: None)
  Receive Date: 20120420
  Receipt Date: 20120420
  Transmission Date: 20120825
  Serious: Yes (Death, Hospitalization, Other)
  Sender: FDA-Public Use
  Company Number: FR-PFIZER INC-2011033322

PATIENT
  Age: 41 Year
  Sex: Male
  Weight: 113 kg

DRUGS (9)
  1. DESMOPRESSIN ACETATE [Concomitant]
     Indication: ANTIDIURETIC HORMONE ABNORMALITY
     Dosage: 0.4 MG, 1X/DAY
     Route: 048
     Dates: start: 20080327, end: 20090817
  2. LEVOTHYROXINE SODIUM [Concomitant]
     Indication: BLOOD THYROID STIMULATING HORMONE DECREASED
     Dosage: 175 UG, 1X/DAY
     Route: 048
     Dates: start: 20080927, end: 20090817
  3. GLUCOPHAGE [Concomitant]
     Indication: ANTIDIURETIC HORMONE ABNORMALITY
     Dosage: 2300 IU, 1X/DAY
     Route: 048
     Dates: start: 20090227, end: 20090817
  4. ANDROTARDYL [Concomitant]
     Indication: BLOOD LUTEINISING HORMONE DECREASED
     Dosage: 1 DF, EVERY 3 WEEKS
     Dates: start: 20080327, end: 20090817
  5. HYDROCORTISONE [Concomitant]
     Indication: BLOOD CORTICOTROPHIN DECREASED
     Dosage: 20 MG, 1X/DAY
     Route: 048
     Dates: start: 20080327, end: 20090817
  6. SOMATROPIN [Suspect]
     Dosage: 0.2 MG, 1X/DAY
     Dates: end: 20090817
  7. ANDROTARDYL [Concomitant]
     Indication: BLOOD FOLLICLE STIMULATING HORMONE DECREASED
  8. SOMATROPIN [Suspect]
     Indication: HYPOPITUITARISM
     Dosage: 0.3 MG, 1X/DAY
     Dates: start: 20080327
  9. LEVOTHYROXINE SODIUM [Concomitant]
     Indication: PRIMARY HYPOTHYROIDISM

REACTIONS (2)
  - DYSPNOEA [None]
  - INFECTIOUS PERITONITIS [None]
